FAERS Safety Report 9550491 (Version 1)
Quarter: 2013Q3

REPORT INFORMATION
  Report Type: Spontaneous
  Country: US (occurrence: US)
  Receive Date: 20130924
  Receipt Date: 20130924
  Transmission Date: 20140515
  Serious: No
  Sender: FDA-Public Use
  Company Number: US-SANOFI-AVENTIS-2013SA083444

PATIENT
  Age: 58 Year
  Sex: Female

DRUGS (7)
  1. AUBAGIO [Suspect]
     Indication: MULTIPLE SCLEROSIS
     Route: 048
  2. IBUPROFEN [Concomitant]
  3. VITAMIN D3 [Concomitant]
  4. CALCIUM [Concomitant]
  5. MULTIVITAMINS [Concomitant]
  6. TRILEPTAL [Concomitant]
  7. PROZAC [Concomitant]

REACTIONS (1)
  - Rash [Unknown]
